APPROVED DRUG PRODUCT: CLONIDINE HYDROCHLORIDE
Active Ingredient: CLONIDINE HYDROCHLORIDE
Strength: 0.2MG
Dosage Form/Route: TABLET;ORAL
Application: A070964 | Product #001
Applicant: WATSON LABORATORIES INC
Approved: Jul 8, 1986 | RLD: No | RS: No | Type: DISCN